FAERS Safety Report 8805208 (Version 1)
Quarter: 2012Q4

REPORT INFORMATION
  Report Type: 
  Country: PL (occurrence: PL)
  Receive Date: 20120924
  Receipt Date: 20120924
  Transmission Date: 20130627
  Serious: Yes (Hospitalization)
  Sender: FDA-Public Use
  Company Number: PHHY2012PL080887

PATIENT
  Age: 57 Year
  Sex: Female
  Weight: 120 kg

DRUGS (1)
  1. CARBOPLATIN [Suspect]
     Indication: OVARIAN CANCER
     Dosage: 600 mg, daily
     Route: 042
     Dates: start: 20120702

REACTIONS (3)
  - Dyspnoea [Recovered/Resolved]
  - Formication [Recovered/Resolved]
  - Pruritus [Recovered/Resolved]
